FAERS Safety Report 15741609 (Version 3)
Quarter: 2020Q4

REPORT INFORMATION
  Report Type: Spontaneous
  Country: US (occurrence: US)
  Receive Date: 20181219
  Receipt Date: 20201215
  Transmission Date: 20210113
  Serious: No
  Sender: FDA-Public Use
  Company Number: US-SA-2018SA387873

PATIENT

DRUGS (30)
  1. BUSPIRONE [Concomitant]
     Active Substance: BUSPIRONE HYDROCHLORIDE
  2. METHYLPRED [Concomitant]
     Active Substance: METHYLPREDNISOLONE
  3. CEFDINIR. [Concomitant]
     Active Substance: CEFDINIR
  4. ONDANSETRON [Concomitant]
     Active Substance: ONDANSETRON
  5. PHENTERMINE. [Concomitant]
     Active Substance: PHENTERMINE
  6. METFORMIN [Concomitant]
     Active Substance: METFORMIN HYDROCHLORIDE
  7. ATORVASTATIN [Concomitant]
     Active Substance: ATORVASTATIN
  8. DULOXETINE. [Concomitant]
     Active Substance: DULOXETINE
  9. LISINOPRIL. [Concomitant]
     Active Substance: LISINOPRIL
  10. ZOLPIDEM [Concomitant]
     Active Substance: ZOLPIDEM TARTRATE
  11. PREDNISONE. [Concomitant]
     Active Substance: PREDNISONE
  12. TRAZODONE [Concomitant]
     Active Substance: TRAZODONE HYDROCHLORIDE
  13. NEOMYCIN AND POLYMYXIN B SULFATES AND HYDROCORTISONE [Concomitant]
     Active Substance: HYDROCORTISONE\NEOMYCIN SULFATE\POLYMYXIN B SULFATE
  14. DUPIXENT [Suspect]
     Active Substance: DUPILUMAB
     Indication: DERMATITIS ATOPIC
     Dosage: 300 MG, QOW
     Route: 058
     Dates: start: 20180508, end: 20181101
  15. ECONAZOLE. [Concomitant]
     Active Substance: ECONAZOLE NITRATE
  16. IPRATROPIUM BROMIDE AND ALBUTEROL SULFATE [Concomitant]
     Active Substance: ALBUTEROL SULFATE\IPRATROPIUM BROMIDE
  17. LORATADINE. [Concomitant]
     Active Substance: LORATADINE
  18. FLUTICASONE. [Concomitant]
     Active Substance: FLUTICASONE
  19. DOXYCYCLINE MONOHYDRATE [Concomitant]
     Active Substance: DOXYCYCLINE
  20. DUPIXENT [Suspect]
     Active Substance: DUPILUMAB
     Dosage: 300 MG, QOW
     Route: 058
  21. PROAIR HFA [Concomitant]
     Active Substance: ALBUTEROL SULFATE
  22. VENLAFAXINE [Concomitant]
     Active Substance: VENLAFAXINE HYDROCHLORIDE
  23. LITHIUM CARBONATE. [Concomitant]
     Active Substance: LITHIUM CARBONATE
  24. LATUDA [Concomitant]
     Active Substance: LURASIDONE HYDROCHLORIDE
  25. VICTOZA [Concomitant]
     Active Substance: LIRAGLUTIDE
  26. CLONAZEPAM. [Concomitant]
     Active Substance: CLONAZEPAM
  27. MONTELUKAST [Concomitant]
     Active Substance: MONTELUKAST SODIUM
  28. APAP;HYDROCODONE [Concomitant]
     Active Substance: ACETAMINOPHEN\HYDROCODONE
  29. NITROFURANTIN [Concomitant]
     Active Substance: NITROFURANTOIN
  30. OFLOXACIN. [Concomitant]
     Active Substance: OFLOXACIN

REACTIONS (7)
  - Peripheral swelling [Not Recovered/Not Resolved]
  - Insomnia [Not Recovered/Not Resolved]
  - Discomfort [Not Recovered/Not Resolved]
  - Dermatitis atopic [Not Recovered/Not Resolved]
  - Rash [Not Recovered/Not Resolved]
  - Product dose omission issue [Unknown]
  - Product dose omission issue [Not Recovered/Not Resolved]

NARRATIVE: CASE EVENT DATE: 2018
